FAERS Safety Report 17351710 (Version 1)
Quarter: 2020Q1

REPORT INFORMATION
  Report Type: Spontaneous
  Country: FR (occurrence: FR)
  Receive Date: 20200130
  Receipt Date: 20200130
  Transmission Date: 20200409
  Serious: Yes (Hospitalization)
  Sender: FDA-Public Use
  Company Number: FR-ALLERGAN-2003190US

PATIENT
  Sex: Female

DRUGS (3)
  1. PYLERA [Suspect]
     Active Substance: BISMUTH SUBCITRATE POTASSIUM\METRONIDAZOLE\TETRACYCLINE HYDROCHLORIDE
     Indication: HELICOBACTER GASTRITIS
     Dosage: 9 DF, QD
     Route: 048
     Dates: start: 201911, end: 201911
  2. IMUREL [Interacting]
     Active Substance: AZATHIOPRINE SODIUM
     Indication: AUTOIMMUNE HEPATITIS
     Dosage: 1 DF,1 DOSE 24 HOURS
     Route: 065
     Dates: start: 2017
  3. IMUREL [Interacting]
     Active Substance: AZATHIOPRINE SODIUM
     Dosage: 75 MG, 1 DOSE 24 HOURS
     Route: 048
     Dates: start: 201909, end: 201912

REACTIONS (8)
  - Gait disturbance [Recovered/Resolved]
  - Myalgia [Recovered/Resolved]
  - Urinary tract infection [Recovered/Resolved]
  - Drug interaction [Unknown]
  - Weight decreased [Recovered/Resolved]
  - Pustule [Recovered/Resolved]
  - Arthralgia [Recovered/Resolved]
  - Pyrexia [Recovered/Resolved]

NARRATIVE: CASE EVENT DATE: 201911
